FAERS Safety Report 4834800-0 (Version None)
Quarter: 2005Q4

REPORT INFORMATION
  Report Type: 
  Country: None (occurrence: None)
  Receive Date: 20051122
  Receipt Date: 20051107
  Transmission Date: 20060501
  Serious: Yes (Hospitalization)
  Sender: FDA-Public Use
  Company Number: PHBS2005ES16311

PATIENT
  Sex: Female

DRUGS (6)
  1. VOLTAREN [Suspect]
     Indication: MULTIPLE FRACTURES
     Dosage: 75 MG/DAY
     Route: 030
     Dates: start: 20050828, end: 20050901
  2. CEFAZOLIN [Concomitant]
     Dosage: 3 G
     Route: 048
  3. ORFIDAL [Concomitant]
     Route: 048
  4. ALLOPURINOL [Concomitant]
     Dosage: 300 MG
     Route: 048
  5. LEVOTHROID [Concomitant]
     Dosage: 100 MCG
     Route: 048
  6. OMEPRAZOLE [Concomitant]
     Dosage: 20 MG
     Route: 048

REACTIONS (8)
  - ALANINE AMINOTRANSFERASE INCREASED [None]
  - ASPARTATE AMINOTRANSFERASE INCREASED [None]
  - BILIRUBIN CONJUGATED INCREASED [None]
  - BLOOD ALKALINE PHOSPHATASE INCREASED [None]
  - BLOOD BILIRUBIN INCREASED [None]
  - GAMMA-GLUTAMYLTRANSFERASE INCREASED [None]
  - HEPATITIS CHOLESTATIC [None]
  - PROTHROMBIN TIME SHORTENED [None]
